FAERS Safety Report 21394416 (Version 7)
Quarter: 2022Q4

REPORT INFORMATION
  Report Type: Report from Study
  Country: US (occurrence: US)
  Receive Date: 20220930
  Receipt Date: 20221229
  Transmission Date: 20230113
  Serious: No
  Sender: FDA-Public Use
  Company Number: US-NOVARTISPH-NVSC2022US216795

PATIENT
  Sex: Female

DRUGS (3)
  1. COSENTYX [Suspect]
     Active Substance: SECUKINUMAB
     Indication: Ankylosing spondylitis
     Dosage: 150 MG, QW
     Route: 058
  2. COSENTYX [Suspect]
     Active Substance: SECUKINUMAB
     Dosage: 150 MG QMO (ONCE A WEEK FOR (5 WEEKS AND THEN Q 4 WEEKS)
     Route: 058
  3. COSENTYX [Suspect]
     Active Substance: SECUKINUMAB
     Dosage: 300 MG, QMO
     Route: 058

REACTIONS (6)
  - Pain [Unknown]
  - Fatigue [Recovering/Resolving]
  - Candida infection [Recovering/Resolving]
  - Oropharyngeal pain [Recovering/Resolving]
  - Therapeutic response shortened [Recovering/Resolving]
  - Product supply issue [Unknown]
